FAERS Safety Report 25250279 (Version 3)
Quarter: 2025Q2

REPORT INFORMATION
  Report Type: Spontaneous
  Country: AR (occurrence: AR)
  Receive Date: 20250429
  Receipt Date: 20250530
  Transmission Date: 20250717
  Serious: No
  Sender: PFIZER
  Company Number: AR-PFIZER INC-202500089278

PATIENT
  Age: 8 Year
  Sex: Male

DRUGS (2)
  1. GENOTROPIN [Suspect]
     Active Substance: SOMATROPIN
     Indication: Short stature
     Dates: start: 20240308, end: 2024
  2. GENOTROPIN [Suspect]
     Active Substance: SOMATROPIN
     Dates: start: 2024

REACTIONS (2)
  - Device power source issue [Unknown]
  - Device information output issue [Unknown]

NARRATIVE: CASE EVENT DATE: 20250401
